FAERS Safety Report 8106219-0 (Version None)
Quarter: 2012Q1

REPORT INFORMATION
  Report Type: 
  Country: None (occurrence: None)
  Receive Date: 20120130
  Receipt Date: 20120119
  Transmission Date: 20120608
  Serious: Yes (Hospitalization)
  Sender: FDA-Public Use
  Company Number: 2012SP003617

PATIENT
  Age: 31 Year
  Sex: Female

DRUGS (5)
  1. PRAZEPAM [Suspect]
     Indication: SUICIDE ATTEMPT
     Dosage: 1350 MG, ONCE, PO
     Route: 048
     Dates: start: 20110812, end: 20110812
  2. PAROXETINE [Suspect]
     Indication: SUICIDE ATTEMPT
     Dosage: 1400 MG, ONCE, PO
     Route: 048
     Dates: start: 20110812, end: 20110812
  3. ACETAMINOPHEN [Suspect]
     Indication: SUICIDE ATTEMPT
     Dosage: 5 GM, ONCE, PO
     Route: 048
     Dates: start: 20110812, end: 20110812
  4. DESLORATADINE [Suspect]
     Indication: SUICIDE ATTEMPT
     Dosage: 5 DF, ONCE, PO
     Route: 048
     Dates: start: 20110812, end: 20110812
  5. CARLIN (FEMODENE) [Suspect]
     Indication: SUICIDE ATTEMPT
     Dosage: ONCE, PO
     Route: 048
     Dates: start: 20110812, end: 20110812

REACTIONS (4)
  - NAUSEA [None]
  - TOXICITY TO VARIOUS AGENTS [None]
  - VOMITING [None]
  - MYDRIASIS [None]
